FAERS Safety Report 8915863 (Version 1)
Quarter: 2012Q4

REPORT INFORMATION
  Report Type: 
  Country: US (occurrence: US)
  Receive Date: 20121119
  Receipt Date: 20121119
  Transmission Date: 20130627
  Serious: Yes (Hospitalization, Other)
  Sender: FDA-Public Use
  Company Number: US-PFIZER INC-2012288262

PATIENT
  Age: 53 Year
  Sex: Female
  Weight: 98.41 kg

DRUGS (4)
  1. LYRICA [Suspect]
     Indication: FIBROMYALGIA
     Dosage: 200 mg, 1x/day
     Route: 048
     Dates: start: 2006
  2. LYRICA [Suspect]
     Dosage: 200 mg, 2x/day
     Dates: end: 201210
  3. FERROUS FUMARATE [Suspect]
     Indication: IRON DECREASED
     Dosage: UNK
  4. CITALOPRAM [Concomitant]
     Indication: DEPRESSION
     Dosage: 40 mg, 1x/day

REACTIONS (6)
  - Pulmonary embolism [Unknown]
  - Pneumonia [Unknown]
  - Multiple sclerosis [Unknown]
  - Blood iron decreased [Unknown]
  - Malaise [Unknown]
  - Blood count abnormal [Unknown]
